FAERS Safety Report 9771403 (Version 2)
Quarter: 2013Q4

REPORT INFORMATION
  Report Type: Report from Study
  Country: CO (occurrence: CO)
  Receive Date: 20131219
  Receipt Date: 20131231
  Transmission Date: 20140711
  Serious: No
  Sender: FDA-Public Use
  Company Number: CO-ROCHE-1321203

PATIENT
  Age: 16 Year
  Sex: Female
  Weight: 51.08 kg

DRUGS (4)
  1. XOLAIR [Suspect]
     Indication: ASTHMA
     Route: 042
     Dates: start: 20111118
  2. XOLAIR [Suspect]
     Route: 042
     Dates: start: 201303, end: 201303
  3. XOLAIR [Suspect]
     Route: 058
  4. AMOXICILLIN [Concomitant]

REACTIONS (7)
  - Asthmatic crisis [Recovering/Resolving]
  - Pyrexia [Recovering/Resolving]
  - Pain [Not Recovered/Not Resolved]
  - Incorrect route of drug administration [Unknown]
  - Headache [Not Recovered/Not Resolved]
  - Influenza like illness [Not Recovered/Not Resolved]
  - Cough [Recovering/Resolving]
